FAERS Safety Report 6672903-9 (Version None)
Quarter: 2010Q2

REPORT INFORMATION
  Report Type: 
  Country: None (occurrence: None)
  Receive Date: 20100408
  Receipt Date: 20100330
  Transmission Date: 20101027
  Serious: Yes (Other)
  Sender: FDA-Public Use
  Company Number: PHHY2010GB06685

PATIENT
  Sex: Male

DRUGS (1)
  1. DIOVAN [Suspect]
     Indication: HYPERTENSION
     Dosage: 40 MG, BID

REACTIONS (5)
  - GAIT DISTURBANCE [None]
  - INTERMITTENT CLAUDICATION [None]
  - LIMB DISCOMFORT [None]
  - MUSCLE SPASMS [None]
  - PAIN IN EXTREMITY [None]
